FAERS Safety Report 26045807 (Version 1)
Quarter: 2025Q4

REPORT INFORMATION
  Report Type: Spontaneous
  Country: US (occurrence: None)
  Receive Date: 20251114
  Receipt Date: 20251114
  Transmission Date: 20260117
  Serious: Yes (Hospitalization)
  Sender: FDA-CTU
  Company Number: None

PATIENT
  Age: 27 Year
  Sex: Male
  Weight: 111.9 kg

DRUGS (16)
  1. CYCLOPHOSPHAMIDE [Suspect]
     Active Substance: CYCLOPHOSPHAMIDE
     Dates: end: 20251029
  2. CYTARABINE [Suspect]
     Active Substance: CYTARABINE
     Dates: end: 20251027
  3. DEXAMETHASONE [Suspect]
     Active Substance: DEXAMETHASONE
     Dates: end: 20251106
  4. DOXORUBICIN HYDROCHLORIDE [Suspect]
     Active Substance: DOXORUBICIN HYDROCHLORIDE
     Dates: end: 20251030
  5. MESNA [Suspect]
     Active Substance: MESNA
     Dates: end: 20251029
  6. METHOTREXATE [Suspect]
     Active Substance: METHOTREXATE
     Dates: end: 20251103
  7. PONATINIB [Suspect]
     Active Substance: PONATINIB
     Dates: end: 20251105
  8. VINCRISTINE SULFATE [Suspect]
     Active Substance: VINCRISTINE SULFATE
     Indication: Hospitalisation
     Dates: end: 20251030
  9. MORPHINE [Concomitant]
     Active Substance: MORPHINE
  10. TYLENOL [Concomitant]
     Active Substance: ACETAMINOPHEN
  11. CEFEPIME [Concomitant]
     Active Substance: CEFEPIME HYDROCHLORIDE
  12. DILAUDID [Concomitant]
     Active Substance: HYDROMORPHONE HYDROCHLORIDE
  13. LEVOFLOXACIN [Concomitant]
     Active Substance: LEVOFLOXACIN
  14. OXYCODONE [Concomitant]
     Active Substance: OXYCODONE
  15. SODIUM CHLORIDE [Concomitant]
     Active Substance: SODIUM CHLORIDE
  16. VANCOMYCIN [Concomitant]
     Active Substance: VANCOMYCIN

REACTIONS (12)
  - Catheter site cellulitis [None]
  - Febrile neutropenia [None]
  - Bone pain [None]
  - Leukaemia [None]
  - Pneumonia [None]
  - Hyponatraemia [None]
  - Hypocalcaemia [None]
  - Anaemia [None]
  - Thrombocytopenia [None]
  - Tenosynovitis [None]
  - Arthritis bacterial [None]
  - Arthritis infective [None]

NARRATIVE: CASE EVENT DATE: 20251105
